FAERS Safety Report 19632103 (Version 1)
Quarter: 2021Q3

REPORT INFORMATION
  Report Type: Spontaneous
  Country: US (occurrence: US)
  Receive Date: 20210728
  Receipt Date: 20210728
  Transmission Date: 20211014
  Serious: No
  Sender: FDA-Public Use
  Company Number: US-ROCHE-2624767

PATIENT
  Sex: Male

DRUGS (1)
  1. XELODA [Suspect]
     Active Substance: CAPECITABINE
     Indication: GASTROINTESTINAL NEOPLASM
     Dosage: 3 TABLET BY MOUTH 2 TIMES A DAY 7 DAYS ON AND 7 DAYS OFF ; ONGOING:YES
     Route: 048
     Dates: start: 20200417

REACTIONS (3)
  - Neuropathy peripheral [Unknown]
  - Intentional product use issue [Unknown]
  - Off label use [Unknown]
